FAERS Safety Report 8435656-X (Version None)
Quarter: 2012Q2

REPORT INFORMATION
  Report Type: 
  Country: None (occurrence: None)
  Receive Date: 20120614
  Receipt Date: 20120606
  Transmission Date: 20120825
  Serious: Yes (Other)
  Sender: FDA-Public Use
  Company Number: FR-JNJFOC-20120603552

PATIENT
  Age: 58 Year
  Sex: Male

DRUGS (2)
  1. TOPIRAMATE [Suspect]
     Route: 048
  2. TOPIRAMATE [Suspect]
     Indication: MIGRAINE
     Route: 048
     Dates: start: 20120531

REACTIONS (8)
  - VISUAL IMPAIRMENT [None]
  - URINARY TRACT DISORDER [None]
  - DISTURBANCE IN ATTENTION [None]
  - DIZZINESS [None]
  - DEPRESSION [None]
  - PSYCHOMOTOR SKILLS IMPAIRED [None]
  - NAUSEA [None]
  - VOCAL CORD DISORDER [None]
